FAERS Safety Report 23821848 (Version 1)
Quarter: 2024Q2

REPORT INFORMATION
  Report Type: Spontaneous
  Country: CA (occurrence: CA)
  Receive Date: 20240506
  Receipt Date: 20240506
  Transmission Date: 20240716
  Serious: Yes (Other)
  Sender: FDA-Public Use
  Company Number: CA-TEVA-VS-3193985

PATIENT
  Age: 52 Year
  Sex: Female

DRUGS (1)
  1. AJOVY [Suspect]
     Active Substance: FREMANEZUMAB-VFRM
     Indication: Product used for unknown indication
     Dosage: DOSE FORM: SOLUTION SUBCUTANEOUS, SINGLE-DOSE?PREFILLED AUTOINJECTOR
     Route: 065

REACTIONS (5)
  - Rash [Unknown]
  - Dizziness [Unknown]
  - Swelling face [Unknown]
  - Throat tightness [Unknown]
  - Wheezing [Unknown]
